FAERS Safety Report 7579282-3 (Version None)
Quarter: 2011Q2

REPORT INFORMATION
  Report Type: 
  Country: None (occurrence: None)
  Receive Date: 20110628
  Receipt Date: 20110616
  Transmission Date: 20111010
  Serious: Yes (Other)
  Sender: FDA-Public Use
  Company Number: US-RB-026953-11

PATIENT
  Age: 58 Year
  Sex: Male

DRUGS (1)
  1. SUBOXONE [Suspect]
     Indication: DRUG DEPENDENCE
     Dosage: REPORTS TAKING MORE THAN PRESCRIBED, TAKING 2 1/2  8 MG TABLETS PER DAY
     Route: 060
     Dates: start: 20090601

REACTIONS (9)
  - ASTHENIA [None]
  - NAUSEA [None]
  - TOOTH DISORDER [None]
  - CONDITION AGGRAVATED [None]
  - INTENTIONAL OVERDOSE [None]
  - RECURRENT CANCER [None]
  - HYPERHIDROSIS [None]
  - THERMAL BURN [None]
  - PROSTATE CANCER [None]
